FAERS Safety Report 7692813-8 (Version None)
Quarter: 2011Q3

REPORT INFORMATION
  Report Type: 
  Country: None (occurrence: None)
  Receive Date: 20110819
  Receipt Date: 20110810
  Transmission Date: 20111222
  Serious: Yes (Hospitalization, Disabling, Other)
  Sender: FDA-Public Use
  Company Number: US-ELI_LILLY_AND_COMPANY-US201007000557

PATIENT
  Sex: Female
  Weight: 108.84 kg

DRUGS (3)
  1. BYETTA [Suspect]
     Dosage: UNK, UNKNOWN
     Dates: start: 20050901, end: 20081001
  2. DRUG USED IN DIABETES [Concomitant]
  3. CALCIUM CARBONATE [Concomitant]

REACTIONS (4)
  - PANCREATITIS [None]
  - INJURY [None]
  - RENAL DISORDER [None]
  - PANCREATIC DISORDER [None]
